FAERS Safety Report 7167034-8 (Version None)
Quarter: 2010Q4

REPORT INFORMATION
  Report Type: 
  Country: None (occurrence: None)
  Receive Date: 20101216
  Receipt Date: 20101209
  Transmission Date: 20110411
  Serious: Yes (Hospitalization)
  Sender: FDA-Public Use
  Company Number: B0686813A

PATIENT
  Age: 78 Year
  Sex: Female

DRUGS (10)
  1. VALTREX [Suspect]
     Indication: HERPES ZOSTER
     Dosage: 3000MG PER DAY
     Route: 048
     Dates: start: 20101119, end: 20101123
  2. HYPEN [Concomitant]
     Route: 048
  3. ACTONEL [Concomitant]
     Route: 048
  4. ASPARA-CA [Concomitant]
     Route: 048
  5. MUCOSTA [Concomitant]
     Route: 048
  6. UNKNOWN DRUG [Concomitant]
     Route: 048
  7. GLAKAY [Concomitant]
     Route: 048
  8. ADALAT CC [Concomitant]
     Route: 048
  9. VERAPAMIL HCL [Concomitant]
     Route: 065
  10. OMEPRAZOLE [Concomitant]
     Route: 065

REACTIONS (3)
  - ALTERED STATE OF CONSCIOUSNESS [None]
  - DYSLALIA [None]
  - ENCEPHALOPATHY [None]
